FAERS Safety Report 4684919-2 (Version None)
Quarter: 2005Q2

REPORT INFORMATION
  Report Type: 
  Country: None (occurrence: None)
  Receive Date: 20050606
  Receipt Date: 20050606
  Transmission Date: 20051028
  Serious: Yes (Hospitalization)
  Sender: FDA-Public Use
  Company Number: None

PATIENT
  Age: 81 Year
  Sex: Male
  Weight: 92.0802 kg

DRUGS (2)
  1. ZOSYN [Suspect]
     Indication: PNEUMONIA
     Dosage: EVERY 6 HOURS
     Dates: start: 20050328, end: 20050329
  2. GATIFLOXACIN [Concomitant]

REACTIONS (1)
  - RASH ERYTHEMATOUS [None]
